FAERS Safety Report 26056373 (Version 1)
Quarter: 2025Q4

REPORT INFORMATION
  Report Type: Spontaneous
  Country: EU (occurrence: EU)
  Receive Date: 20251118
  Receipt Date: 20251118
  Transmission Date: 20260118
  Serious: Yes (Life-Threatening, Hospitalization)
  Sender: ROCHE
  Company Number: EU-ROCHE-10000433093

PATIENT
  Sex: Female
  Weight: 50 kg

DRUGS (1)
  1. OBINUTUZUMAB [Suspect]
     Active Substance: OBINUTUZUMAB
     Indication: Lupus nephritis
     Route: 065

REACTIONS (3)
  - Coxsackie viral infection [Unknown]
  - Myocarditis [Unknown]
  - Pneumonia [Unknown]
